FAERS Safety Report 6719959-2 (Version None)
Quarter: 2010Q2

REPORT INFORMATION
  Report Type: 
  Country: None (occurrence: None)
  Receive Date: 20100511
  Receipt Date: 20100505
  Transmission Date: 20101027
  Serious: Yes (Hospitalization, Other)
  Sender: FDA-Public Use
  Company Number: US-ELI_LILLY_AND_COMPANY-US201005001579

PATIENT
  Sex: Male

DRUGS (4)
  1. HUMALOG [Suspect]
     Indication: DIABETES MELLITUS
     Dosage: 14 U, OTHER
     Dates: start: 19950101
  2. HUMALOG [Suspect]
     Dosage: 14 U, OTHER
     Dates: start: 20100201
  3. HUMALOG [Suspect]
     Dosage: 14 U, OTHER
     Dates: start: 20100201
  4. LEVEMIR [Concomitant]
     Dosage: UNK, EACH EVENING

REACTIONS (6)
  - BLINDNESS UNILATERAL [None]
  - BLOOD GLUCOSE DECREASED [None]
  - INCORRECT DOSE ADMINISTERED [None]
  - LUNG NEOPLASM MALIGNANT [None]
  - PNEUMONIA [None]
  - RETINAL DETACHMENT [None]
